FAERS Safety Report 7462582-5 (Version None)
Quarter: 2011Q2

REPORT INFORMATION
  Report Type: 
  Country: None (occurrence: None)
  Receive Date: 20110506
  Receipt Date: 20110107
  Transmission Date: 20111010
  Serious: Yes (Hospitalization, Other)
  Sender: FDA-Public Use
  Company Number: US-BAYER-201035892NA

PATIENT
  Age: 37 Year
  Sex: Female
  Weight: 81.633 kg

DRUGS (15)
  1. TETRACYCLINE [Concomitant]
     Indication: ACNE
     Dosage: UNK
     Dates: start: 20030101, end: 20040101
  2. YASMIN [Suspect]
     Indication: ACNE
     Dosage: UNK UNK, UNK
     Route: 048
     Dates: start: 20021224, end: 20030301
  3. ORTHO TRI-CYCLEN [Concomitant]
  4. SEROQUEL [Concomitant]
  5. XENICAL [Concomitant]
  6. ZOLPIDEM TARTRATE [Concomitant]
  7. VITAMIN C [Concomitant]
     Dosage: UNK
     Dates: start: 20000101
  8. YASMIN [Suspect]
     Dosage: UNK
     Dates: start: 20020224, end: 20030301
  9. LEVOTHYROXINE SODIUM [Concomitant]
     Dosage: UNK
     Dates: start: 19990101
  10. LORTAB [Concomitant]
     Dosage: UNK
     Dates: start: 20040327
  11. ARIPIPRAZOLE [Concomitant]
  12. NSAID'S [Concomitant]
     Dosage: UNK
     Dates: start: 20000101
  13. WELLBUTRIN [Concomitant]
     Indication: DEPRESSION
     Dosage: UNK
     Dates: start: 19990101
  14. DIVALPROEX [Concomitant]
  15. OLANZAPINE [Concomitant]
     Indication: SCHIZOPHRENIA
     Dosage: UNK
     Dates: start: 19980101, end: 20050101

REACTIONS (2)
  - CHOLECYSTITIS CHRONIC [None]
  - GALLBLADDER DISORDER [None]
